FAERS Safety Report 10491936 (Version 1)
Quarter: 2014Q4

REPORT INFORMATION
  Report Type: Spontaneous
  Country: US (occurrence: US)
  Receive Date: 20141002
  Receipt Date: 20141002
  Transmission Date: 20150528
  Serious: No
  Sender: FDA-Public Use
  Company Number: US-GLAXOSMITHKLINE-A1062351A

PATIENT
  Age: 70 Year
  Sex: Female

DRUGS (6)
  1. SINGULAIR [Concomitant]
     Active Substance: MONTELUKAST SODIUM
  2. THYROID MEDICATION [Concomitant]
     Active Substance: UNSPECIFIED INGREDIENT
  3. ADVAIR HFA [Suspect]
     Active Substance: FLUTICASONE PROPIONATE\SALMETEROL XINAFOATE
     Indication: CHRONIC OBSTRUCTIVE PULMONARY DISEASE
     Dosage: 1PUFF TWICE PER DAY
     Route: 055
     Dates: start: 20130920
  4. ANTIDEPRESSANT [Concomitant]
     Active Substance: UNSPECIFIED INGREDIENT
  5. PROTON PUMP INHIBITOR [Concomitant]
     Active Substance: UNSPECIFIED INGREDIENT
  6. NORVASC [Concomitant]
     Active Substance: AMLODIPINE BESYLATE

REACTIONS (2)
  - Product quality issue [Unknown]
  - Drug ineffective [Unknown]

NARRATIVE: CASE EVENT DATE: 20140220
